FAERS Safety Report 23015446 (Version 1)
Quarter: 2023Q4

REPORT INFORMATION
  Report Type: Spontaneous
  Country: JP (occurrence: JP)
  Receive Date: 20231002
  Receipt Date: 20231002
  Transmission Date: 20240110
  Serious: Yes (Other)
  Sender: FDA-Public Use
  Company Number: JP-ELI_LILLY_AND_COMPANY-JP202309014999

PATIENT
  Sex: Female

DRUGS (2)
  1. VERZENIO [Suspect]
     Active Substance: ABEMACICLIB
     Indication: Breast cancer metastatic
     Dosage: 300 MG, UNKNOWN
     Route: 048
     Dates: start: 20230721, end: 20230901
  2. FASLODEX [Concomitant]
     Active Substance: FULVESTRANT
     Indication: Breast cancer metastatic
     Dosage: UNK
     Route: 041
     Dates: start: 20230721

REACTIONS (1)
  - Hepatic function abnormal [Not Recovered/Not Resolved]

NARRATIVE: CASE EVENT DATE: 20230901
